FAERS Safety Report 5148930-X (Version None)
Quarter: 2006Q4

REPORT INFORMATION
  Report Type: 
  Country: None (occurrence: None)
  Receive Date: 20061113
  Receipt Date: 20061106
  Transmission Date: 20070319
  Serious: Yes (Death)
  Sender: FDA-Public Use
  Company Number: PHNU2006DE03625

PATIENT
  Sex: Male
  Weight: 1.64 kg

DRUGS (1)
  1. GLEEVEC [Suspect]
     Route: 064

REACTIONS (7)
  - APGAR SCORE LOW [None]
  - CONGENITAL HYDROCEPHALUS [None]
  - DRUG EXPOSURE DURING PREGNANCY [None]
  - HEART DISEASE CONGENITAL [None]
  - NEONATAL RESPIRATORY FAILURE [None]
  - PREMATURE LABOUR [None]
  - ULTRASOUND DOPPLER ABNORMAL [None]
